FAERS Safety Report 16949017 (Version 3)
Quarter: 2019Q4

REPORT INFORMATION
  Report Type: Spontaneous
  Country: BR (occurrence: BR)
  Receive Date: 20191023
  Receipt Date: 20191205
  Transmission Date: 20200122
  Serious: Yes (Other)
  Sender: FDA-Public Use
  Company Number: NVSC2019BR011357

PATIENT
  Sex: Male

DRUGS (2)
  1. AZORGA [Suspect]
     Active Substance: BRINZOLAMIDE\TIMOLOL MALEATE
     Dosage: 1 GTT, BID, ONE IN MORNING ONE AT NIGHT
     Route: 047
     Dates: start: 20190923, end: 20191016
  2. AZORGA [Suspect]
     Active Substance: BRINZOLAMIDE\TIMOLOL MALEATE
     Indication: PRODUCT USED FOR UNKNOWN INDICATION
     Dosage: 1 GTT, BID, ONE IN MORNING ONE AT NIGHT
     Route: 047
     Dates: start: 20190923, end: 20191016

REACTIONS (4)
  - Product packaging quantity issue [Unknown]
  - Memory impairment [Unknown]
  - Hypertension [Unknown]
  - Cataract [Unknown]
